FAERS Safety Report 13055583 (Version 1)
Quarter: 2016Q4

REPORT INFORMATION
  Report Type: Spontaneous
  Country: FR (occurrence: FR)
  Receive Date: 20161222
  Receipt Date: 20161222
  Transmission Date: 20170207
  Serious: Yes (Hospitalization, Other)
  Sender: FDA-Public Use
  Company Number: FR-PFIZER INC-2016585860

PATIENT
  Age: 43 Year
  Sex: Male

DRUGS (13)
  1. EUPRESSYL /00631801/ [Concomitant]
     Active Substance: URAPIDIL
     Dosage: 30 MG, DAILY
  2. TAHOR [Concomitant]
     Active Substance: ATORVASTATIN CALCIUM
     Dosage: 20 MG, DAILY
  3. ISOPTINE [Concomitant]
     Active Substance: VERAPAMIL HYDROCHLORIDE
     Dosage: 240 MG, DAILY
  4. IKOREL [Concomitant]
     Active Substance: NICORANDIL
     Dosage: 10 MG, 2X/DAY
  5. COVERSIL [Concomitant]
     Dosage: 10 MG, DAILY
  6. HUMALOG [Concomitant]
     Active Substance: INSULIN LISPRO
     Dosage: 66 IU, DAILY
  7. VENTOLINE /00139501/ [Concomitant]
     Active Substance: ALBUTEROL
     Dosage: UNK UNK, AS NEEDED
  8. SERETIDE [Concomitant]
     Active Substance: FLUTICASONE PROPIONATE\SALMETEROL XINAFOATE
     Dosage: 500 UG, UNK
  9. LYRICA [Suspect]
     Active Substance: PREGABALIN
     Dosage: 75 MG, UNK
     Route: 048
     Dates: end: 20161119
  10. ALDACTONE [Concomitant]
     Active Substance: SPIRONOLACTONE
     Dosage: 25 MG, DAILY
  11. KARDEGIC [Concomitant]
     Active Substance: ASPIRIN LYSINE
     Dosage: 75 MG, DAILY
  12. ALDACTAZINE [Concomitant]
     Active Substance: ALTHIAZIDE\SPIRONOLACTONE
     Dosage: 25 MG, DAILY
  13. UMULINE [Concomitant]
     Active Substance: INSULIN HUMAN
     Dosage: 46 IU, DAILY

REACTIONS (9)
  - Hypotension [Recovered/Resolved]
  - Presyncope [Unknown]
  - Metabolic acidosis [Unknown]
  - Left ventricular dysfunction [Unknown]
  - Hepatocellular injury [Unknown]
  - Skin discolouration [Recovered/Resolved]
  - Asthenia [Unknown]
  - Hyperhidrosis [Unknown]
  - Pallor [Recovered/Resolved]

NARRATIVE: CASE EVENT DATE: 20161119
